FAERS Safety Report 5513233-8 (Version None)
Quarter: 2007Q4

REPORT INFORMATION
  Report Type: 
  Country: None (occurrence: None)
  Receive Date: 20071112
  Receipt Date: 20071029
  Transmission Date: 20080405
  Serious: Yes (Other)
  Sender: FDA-Public Use
  Company Number: GB-RANBAXY-2006RR-04123

PATIENT

DRUGS (2)
  1. FLUOXETINE [Suspect]
     Indication: DEPRESSION
     Dosage: UNK
     Route: 048
     Dates: start: 20060808, end: 20060812
  2. PROPRANOLOL [Concomitant]

REACTIONS (3)
  - CHOLELITHIASIS [None]
  - HEPATITIS [None]
  - JAUNDICE CHOLESTATIC [None]
